FAERS Safety Report 7234042-8 (Version None)
Quarter: 2011Q1

REPORT INFORMATION
  Report Type: 
  Country: None (occurrence: None)
  Receive Date: 20110113
  Receipt Date: 20110113
  Transmission Date: 20110831
  Serious: Yes (Hospitalization)
  Sender: FDA-Public Use
  Company Number: None

PATIENT
  Sex: Male
  Weight: 114.3 kg

DRUGS (4)
  1. CARBOPLATIN [Suspect]
     Dosage: 767 MG
     Dates: end: 20110101
  2. TAXOL [Suspect]
     Dosage: 464MG
     Dates: end: 20110110
  3. PROMETHAZINE-CODEINE COUGH SYRUP [Concomitant]
  4. COMBIVENT INALER [Concomitant]

REACTIONS (10)
  - RADIATION PNEUMONITIS [None]
  - GASTROOESOPHAGEAL REFLUX DISEASE [None]
  - PULMONARY MASS [None]
  - OESOPHAGEAL CANDIDIASIS [None]
  - RADIATION OESOPHAGITIS [None]
  - DIARRHOEA [None]
  - METASTATIC NEOPLASM [None]
  - INFUSION RELATED REACTION [None]
  - PULMONARY EMBOLISM [None]
  - BRONCHITIS [None]
